FAERS Safety Report 10712826 (Version 1)
Quarter: 2015Q1

REPORT INFORMATION
  Report Type: Spontaneous
  Country: MY (occurrence: MY)
  Receive Date: 20150115
  Receipt Date: 20150115
  Transmission Date: 20150721
  Serious: Yes (Death)
  Sender: FDA-Public Use
  Company Number: MY-ROCHE-1521739

PATIENT
  Age: 32 Year
  Sex: Male
  Weight: 90 kg

DRUGS (2)
  1. METALYSE [Suspect]
     Active Substance: TENECTEPLASE
     Indication: MYOCARDIAL INFARCTION
     Dosage: 9000 U
     Route: 065
     Dates: start: 20150104
  2. CLEXANE [Suspect]
     Active Substance: ENOXAPARIN SODIUM
     Indication: MYOCARDIAL INFARCTION
     Route: 065
     Dates: start: 20150104

REACTIONS (4)
  - Hypotension [Fatal]
  - Dizziness [Fatal]
  - Dyspnoea [Fatal]
  - Vomiting [Fatal]

NARRATIVE: CASE EVENT DATE: 20150104
